FAERS Safety Report 5286924-4 (Version None)
Quarter: 2007Q1

REPORT INFORMATION
  Report Type: 
  Country: None (occurrence: None)
  Receive Date: 20070329
  Receipt Date: 20070321
  Transmission Date: 20070707
  Serious: Yes (Other)
  Sender: FDA-Public Use
  Company Number: CIP07000584

PATIENT
  Age: 71 Year
  Sex: Female

DRUGS (2)
  1. ACTONEL [Suspect]
     Indication: OSTEOPOROSIS
     Dosage: 35 MG, UNK; ORAL
     Route: 048
     Dates: start: 20060602, end: 20060608
  2. DRUG NOS [Concomitant]

REACTIONS (1)
  - RENAL FAILURE [None]
